FAERS Safety Report 7747515 (Version 2)
Quarter: 2012Q4

REPORT INFORMATION
  Report Type: 
  Country: US (occurrence: US)
  Receive Date: 20110104
  Receipt Date: 20121010
  Transmission Date: 20130627
  Serious: Yes (Death)
  Sender: FDA-Public Use
  Company Number: US-MYLANLABS-2010S1023641

PATIENT
  Age: 55 Year
  Sex: Female
  Weight: 81.65 kg

DRUGS (18)
  1. FENTANYL TRANSDERMAL SYSTEM [Suspect]
     Indication: PAIN
     Dates: start: 200712, end: 20071215
  2. OXYCODONE [Suspect]
     Indication: PAIN
  3. EFFEXOR XR [Suspect]
  4. FLEXOR /00018303/ [Concomitant]
  5. LISINOPRIL [Concomitant]
  6. HYDROMORPHONE [Concomitant]
     Indication: PAIN
     Dosage: Every six to eight hours
     Route: 048
  7. CYMBALTA [Concomitant]
  8. ARTHROTEC [Concomitant]
  9. ESTRADIOL [Concomitant]
     Route: 062
  10. HYDROCHLOROTHIAZIDE [Concomitant]
  11. ROZEREM [Concomitant]
  12. FERROUS GLUCONATE [Concomitant]
  13. DOXYCYCLINE HYCLATE [Concomitant]
  14. QUININE [Concomitant]
     Dosage: Leg cramps with quinine - OTC
  15. PERCOGESIC [Concomitant]
     Dosage: OTC
  16. ADVIL [Concomitant]
  17. BENADRYL [Concomitant]
  18. EXCEDRIN [Concomitant]

REACTIONS (1)
  - Toxicity to various agents [Fatal]
